FAERS Safety Report 4688954-X (Version None)
Quarter: 2005Q2

REPORT INFORMATION
  Report Type: 
  Country: None (occurrence: None)
  Receive Date: 20050613
  Receipt Date: 20050523
  Transmission Date: 20051028
  Serious: Yes (Hospitalization)
  Sender: FDA-Public Use
  Company Number: JP-MERCK-0505USA02889

PATIENT
  Age: 74 Year
  Sex: Female

DRUGS (4)
  1. ZOCOR [Suspect]
     Indication: HYPERLIPIDAEMIA
     Route: 048
     Dates: end: 20050519
  2. FAMOTIDINE [Concomitant]
     Route: 048
     Dates: end: 20050519
  3. ASPIRIN [Suspect]
     Route: 048
     Dates: end: 20050101
  4. RISEDRONATE SODIUM [Concomitant]
     Route: 048
     Dates: end: 20050519

REACTIONS (1)
  - DRUG ERUPTION [None]
